FAERS Safety Report 12346094 (Version 1)
Quarter: 2016Q2

REPORT INFORMATION
  Report Type: Spontaneous
  Country: US (occurrence: US)
  Receive Date: 20160509
  Receipt Date: 20160509
  Transmission Date: 20160815
  Serious: No
  Sender: FDA-Public Use
  Company Number: US-BAYER-2016-088810

PATIENT
  Age: 65 Year
  Sex: Male
  Weight: 56.24 kg

DRUGS (2)
  1. PERCOCET [Concomitant]
     Active Substance: ACETAMINOPHEN\OXYCODONE HYDROCHLORIDE
  2. MIRALAX [Suspect]
     Active Substance: POLYETHYLENE GLYCOL 3350
     Dosage: 1 DF, THREE TIMES A WEEK.
     Route: 048
     Dates: start: 2015

REACTIONS (3)
  - Somnolence [Not Recovered/Not Resolved]
  - Product use issue [None]
  - Irritability [Not Recovered/Not Resolved]
